FAERS Safety Report 8796409 (Version 2)
Quarter: 2012Q4

REPORT INFORMATION
  Report Type: 
  Country: TH (occurrence: TH)
  Receive Date: 20120920
  Receipt Date: 20121124
  Transmission Date: 20130627
  Serious: Yes (Death, Other)
  Sender: FDA-Public Use
  Company Number: PHHY2012TH080997

PATIENT
  Sex: Male

DRUGS (2)
  1. GLIVEC [Suspect]
     Indication: CHRONIC MYELOID LEUKAEMIA
     Dosage: 400 mg, UNK
     Route: 048
     Dates: start: 20110907
  2. GLIVEC [Suspect]
     Dosage: 600 mg, daily
     Route: 048

REACTIONS (4)
  - Death [Fatal]
  - Pulmonary oedema [Unknown]
  - Chronic myeloid leukaemia [Unknown]
  - Pancytopenia [Unknown]
